FAERS Safety Report 15147240 (Version 1)
Quarter: 2018Q3

REPORT INFORMATION
  Report Type: Report from Study
  Country: DE (occurrence: DE)
  Receive Date: 20180716
  Receipt Date: 20180716
  Transmission Date: 20181010
  Serious: Yes (Hospitalization)
  Sender: FDA-Public Use
  Company Number: DE-TEVA-2018-DE-924905

PATIENT
  Age: 65 Year
  Sex: Male
  Weight: 74 kg

DRUGS (18)
  1. FORTECORTIN [Concomitant]
     Active Substance: DEXAMETHASONE
     Indication: PROPHYLAXIS
     Dosage: FOR 4 DAYS EACH CYCLE
     Route: 048
     Dates: start: 20140410, end: 20140510
  2. VITAMIN B12 [Concomitant]
     Active Substance: CYANOCOBALAMIN
     Indication: PROPHYLAXIS
     Dosage: DAILY DOSE: 1 MG MILLGRAM(S) EVERY 9 WEEKS
     Route: 030
     Dates: start: 20140408
  3. PEMETREXED. [Suspect]
     Active Substance: PEMETREXED
     Dosage: DAILY DOSE: 732 MG MILLGRAM(S) EVERY 21 DAYS
     Route: 042
     Dates: start: 20140415
  4. FOLIC ACID. [Concomitant]
     Active Substance: FOLIC ACID
     Indication: CHEMOTHERAPY
     Route: 048
     Dates: start: 20140430
  5. AVASTIN [Suspect]
     Active Substance: BEVACIZUMAB
     Route: 042
     Dates: start: 20140502
  6. FOLIC ACID. [Concomitant]
     Active Substance: FOLIC ACID
     Indication: PROPHYLAXIS
     Route: 048
     Dates: start: 20140408
  7. CISPLATIN. [Suspect]
     Active Substance: CISPLATIN
     Indication: NON-SMALL CELL LUNG CANCER
     Dosage: DAILY DOSE: 109.8 MG MILLGRAM(S) EVERY 21 DAYS
     Route: 042
     Dates: start: 20140415
  8. CISPLATIN. [Suspect]
     Active Substance: CISPLATIN
     Route: 042
     Dates: start: 20140507
  9. PEMETREXED. [Suspect]
     Active Substance: PEMETREXED
     Indication: NON-SMALL CELL LUNG CANCER
     Dosage: DAILY DOSE: 696 MG MILLGRAM(S) EVERY 21 DAYS
     Route: 042
     Dates: start: 20140507
  10. PEMETREXED. [Suspect]
     Active Substance: PEMETREXED
     Route: 042
     Dates: start: 20140709
  11. AVASTIN [Suspect]
     Active Substance: BEVACIZUMAB
     Route: 042
     Dates: start: 20140526
  12. AVASTIN [Suspect]
     Active Substance: BEVACIZUMAB
     Route: 042
     Dates: start: 20140703
  13. FORTECORTIN [Concomitant]
     Active Substance: DEXAMETHASONE
     Indication: CHEMOTHERAPY
  14. CISPLATIN. [Suspect]
     Active Substance: CISPLATIN
     Dosage: DAILY DOSE: 104.4 MG MILLGRAM(S) EVERY 21 DAYS
     Route: 042
     Dates: start: 20140709
  15. PEMETREXED. [Suspect]
     Active Substance: PEMETREXED
     Route: 042
     Dates: start: 20140604
  16. VITAMIN B12 [Concomitant]
     Active Substance: CYANOCOBALAMIN
     Indication: CHEMOTHERAPY
  17. CISPLATIN. [Suspect]
     Active Substance: CISPLATIN
     Route: 042
     Dates: start: 20140604
  18. AVASTIN [Suspect]
     Active Substance: BEVACIZUMAB
     Indication: NON-SMALL CELL LUNG CANCER
     Dosage: DAILY DOSE: 555 MG MILLGRAM(S) EVERY 21 DAYS
     Route: 042
     Dates: start: 20140410

REACTIONS (7)
  - Infection [Recovered/Resolved]
  - Tracheobronchitis [Recovered/Resolved]
  - Pulmonary valve stenosis [Recovered/Resolved]
  - Drug hypersensitivity [Recovered/Resolved]
  - Malignant neoplasm progression [Unknown]
  - Pneumonia [Recovered/Resolved]
  - Drug intolerance [Recovered/Resolved]

NARRATIVE: CASE EVENT DATE: 20140516
